FAERS Safety Report 10562649 (Version 10)
Quarter: 2016Q4

REPORT INFORMATION
  Report Type: Report from Study
  Country: JP (occurrence: JP)
  Receive Date: 20141104
  Receipt Date: 20161117
  Transmission Date: 20170206
  Serious: Yes (Death, Other)
  Sender: FDA-Public Use
  Company Number: JP-SA-2014SA149296

PATIENT
  Age: 67 Year
  Sex: Male
  Weight: 72 kg

DRUGS (10)
  1. GONAX [Concomitant]
     Active Substance: DEGARELIX
     Dates: start: 20141009
  2. LUTEINIZING HORMONE-RELEASING HORMONE [Concomitant]
     Active Substance: LUTEINIZING HORMONE
     Indication: PROSTATE CANCER
  3. PREDNISOLONE. [Concomitant]
     Active Substance: PREDNISOLONE
     Indication: PROSTATE CANCER
     Dates: start: 20140403, end: 20140901
  4. DECADRON [Concomitant]
     Active Substance: DEXAMETHASONE
     Indication: PROSTATE CANCER
     Dates: start: 20140902, end: 20141016
  5. PREDNISOLONE. [Concomitant]
     Active Substance: PREDNISOLONE
     Indication: PROSTATE CANCER
     Dates: start: 20141016, end: 20141027
  6. RANMARK [Concomitant]
     Active Substance: DENOSUMAB
     Indication: METASTASES TO BONE
     Route: 058
     Dates: start: 20141010, end: 20141010
  7. CHLOR-TRIMETON [Concomitant]
     Active Substance: CHLORPHENIRAMINE MALEATE
  8. JEVTANA [Suspect]
     Active Substance: CABAZITAXEL
     Indication: PROSTATE CANCER
     Route: 042
     Dates: start: 20141020, end: 20141020
  9. GASTER [Concomitant]
     Active Substance: FAMOTIDINE
  10. DEXART [Concomitant]
     Active Substance: DEXAMETHASONE SODIUM PHOSPHATE

REACTIONS (7)
  - Vomiting [Not Recovered/Not Resolved]
  - Pyrexia [Fatal]
  - Cardio-respiratory arrest [Fatal]
  - Febrile neutropenia [Fatal]
  - Decreased appetite [Not Recovered/Not Resolved]
  - Increased bronchial secretion [Fatal]
  - Malaise [Not Recovered/Not Resolved]

NARRATIVE: CASE EVENT DATE: 20141026
